FAERS Safety Report 5400764-4 (Version None)
Quarter: 2007Q3

REPORT INFORMATION
  Report Type: 
  Country: None (occurrence: None)
  Receive Date: 20070730
  Receipt Date: 20070720
  Transmission Date: 20080115
  Serious: Yes (Hospitalization, Other)
  Sender: FDA-Public Use
  Company Number: IT-PFIZER INC-2007060301

PATIENT
  Sex: Male

DRUGS (8)
  1. DEPO-MEDROL [Suspect]
     Indication: BACK PAIN
     Dosage: DAILY DOSE:40MG
     Route: 030
     Dates: start: 20070411, end: 20070413
  2. TACHIDOL [Suspect]
     Indication: BACK PAIN
     Route: 048
     Dates: start: 20070411, end: 20070413
  3. VOLTAREN [Suspect]
     Indication: BACK PAIN
     Dosage: DAILY DOSE:100MG
     Route: 054
     Dates: start: 20070320, end: 20070420
  4. VOLTAREN [Suspect]
     Dosage: DAILY DOSE:75MG
     Route: 030
     Dates: start: 20070320, end: 20070420
  5. AULIN [Suspect]
     Indication: BACK PAIN
     Dosage: DAILY DOSE:100MG
     Route: 048
     Dates: start: 20070320, end: 20070420
  6. ENAPREN [Concomitant]
  7. NORVASC [Concomitant]
  8. CARDURA [Concomitant]

REACTIONS (3)
  - ANAEMIA [None]
  - EROSIVE DUODENITIS [None]
  - MELAENA [None]
